FAERS Safety Report 10479734 (Version 1)
Quarter: 2014Q3

REPORT INFORMATION
  Report Type: Report from Study
  Country: US (occurrence: US)
  Receive Date: 20140927
  Receipt Date: 20140927
  Transmission Date: 20150326
  Serious: Yes (Hospitalization, Other)
  Sender: FDA-Public Use
  Company Number: US-ALEXION PHARMACEUTICALS INC-A200800775

PATIENT

DRUGS (1)
  1. SOLIRIS [Suspect]
     Active Substance: ECULIZUMAB
     Indication: PAROXYSMAL NOCTURNAL HAEMOGLOBINURIA
     Dosage: UNK
     Route: 042

REACTIONS (13)
  - Haemoglobin decreased [Recovering/Resolving]
  - Blood product transfusion dependent [Unknown]
  - Transfusion [Unknown]
  - Gravitational oedema [Unknown]
  - Confusional state [Unknown]
  - Asthma [Unknown]
  - Dyspnoea [Unknown]
  - Heart rate abnormal [Unknown]
  - Chromaturia [Unknown]
  - Drug ineffective [Unknown]
  - Hypersensitivity [Unknown]
  - Pyrexia [Unknown]
  - Fatigue [Unknown]

NARRATIVE: CASE EVENT DATE: 2008
